FAERS Safety Report 20649378 (Version 3)
Quarter: 2022Q2

REPORT INFORMATION
  Report Type: Spontaneous
  Country: CA (occurrence: CA)
  Receive Date: 20220329
  Receipt Date: 20220511
  Transmission Date: 20220720
  Serious: Yes (Hospitalization, Other)
  Sender: FDA-Public Use
  Company Number: CA-PFIZER INC-202200432816

PATIENT
  Age: 65 Year
  Sex: Female
  Weight: 61.678 kg

DRUGS (1)
  1. ACCURETIC [Suspect]
     Active Substance: HYDROCHLOROTHIAZIDE\QUINAPRIL HYDROCHLORIDE
     Indication: Blood pressure abnormal
     Dosage: 20 MG
     Dates: start: 2001

REACTIONS (2)
  - Adenosquamous cell carcinoma [Recovered/Resolved]
  - Brain cancer metastatic [Unknown]

NARRATIVE: CASE EVENT DATE: 20190201
